FAERS Safety Report 10851803 (Version 1)
Quarter: 2015Q1

REPORT INFORMATION
  Report Type: Spontaneous
  Country: US (occurrence: US)
  Receive Date: 20150222
  Receipt Date: 20150222
  Transmission Date: 20150721
  Serious: No
  Sender: FDA-Public Use
  Company Number: US-ALLERGAN-1412385US

PATIENT
  Age: 4 Year
  Sex: Female
  Weight: 14 kg

DRUGS (1)
  1. BOTOX [Suspect]
     Active Substance: ONABOTULINUMTOXINA
     Indication: MUSCLE SPASTICITY
     Dosage: 200 UNITS, SINGLE
     Route: 030
     Dates: start: 20140528, end: 20140528

REACTIONS (4)
  - Chromaturia [Unknown]
  - Urinary tract infection [Unknown]
  - Off label use [Unknown]
  - Dysuria [Unknown]

NARRATIVE: CASE EVENT DATE: 20140531
